FAERS Safety Report 18695183 (Version 1)
Quarter: 2021Q1

REPORT INFORMATION
  Report Type: Spontaneous
  Country: FR (occurrence: FR)
  Receive Date: 20210104
  Receipt Date: 20210104
  Transmission Date: 20210419
  Serious: Yes (Other)
  Sender: FDA-Public Use
  Company Number: FR-PFIZER INC-2020517025

PATIENT
  Age: 45 Year
  Sex: Male

DRUGS (5)
  1. KETAMINE [Suspect]
     Active Substance: KETAMINE
     Indication: INDUCTION OF ANAESTHESIA
     Dosage: 25 MG, SINGLE
     Route: 042
     Dates: start: 20190205, end: 20190205
  2. CEFAZOLIN [Suspect]
     Active Substance: CEFAZOLIN
     Indication: ANTIBIOTIC THERAPY
     Dosage: 4 G, SINGLE
     Route: 042
     Dates: start: 20190205, end: 20190205
  3. PROPOFOL. [Suspect]
     Active Substance: PROPOFOL
     Indication: INDUCTION OF ANAESTHESIA
     Dosage: 300 MG, SINGLE
     Route: 042
     Dates: start: 20190205, end: 20190205
  4. REMIFENTANIL HYDROCHLORIDE. [Suspect]
     Active Substance: REMIFENTANIL HYDROCHLORIDE
     Indication: INDUCTION OF ANAESTHESIA
     Dosage: 120 UG, SINGLE
     Route: 042
     Dates: start: 20190205, end: 20190205
  5. CISATRACURIUM BESILATE [Suspect]
     Active Substance: CISATRACURIUM BESYLATE
     Indication: INDUCTION OF ANAESTHESIA
     Dosage: 10 MG, SINGLE
     Route: 042
     Dates: start: 20190205, end: 20190205

REACTIONS (1)
  - Urticaria [Recovered/Resolved]

NARRATIVE: CASE EVENT DATE: 20190205
